FAERS Safety Report 9263547 (Version 3)
Quarter: 2013Q2

REPORT INFORMATION
  Report Type: Spontaneous
  Country: US (occurrence: US)
  Receive Date: 20130430
  Receipt Date: 20130618
  Transmission Date: 20140414
  Serious: Yes (Other)
  Sender: FDA-Public Use
  Company Number: US-TEVA-400629USA

PATIENT
  Age: 40 Year
  Sex: Female

DRUGS (1)
  1. COPAXONE [Suspect]
     Indication: MULTIPLE SCLEROSIS
     Dates: start: 20110422, end: 20130408

REACTIONS (10)
  - Brain neoplasm malignant [Not Recovered/Not Resolved]
  - Lung adenocarcinoma [Unknown]
  - Brain neoplasm [Unknown]
  - Hepatic cancer [Unknown]
  - Bone cancer [Unknown]
  - Neoplasm malignant [Unknown]
  - Spinal cord neoplasm [Unknown]
  - Headache [Unknown]
  - Multiple sclerosis [Not Recovered/Not Resolved]
  - Multiple sclerosis relapse [Unknown]
